FAERS Safety Report 21109877 (Version 2)
Quarter: 2022Q4

REPORT INFORMATION
  Report Type: Spontaneous
  Country: US (occurrence: US)
  Receive Date: 20220721
  Receipt Date: 20221026
  Transmission Date: 20230112
  Serious: No
  Sender: FDA-Public Use
  Company Number: US-ENDO PHARMACEUTICALS INC-2022-003839

PATIENT
  Age: 44 Year

DRUGS (6)
  1. QWO [Suspect]
     Active Substance: COLLAGENASE CLOSTRIDIUM HISTOLYTICUM-AAES
     Indication: Product used for unknown indication
     Dosage: UNK UNKNOWN, UNKNOWN (TREATMENT ONE ON BUTTOCKS)
     Route: 065
     Dates: start: 20211222
  2. QWO [Suspect]
     Active Substance: COLLAGENASE CLOSTRIDIUM HISTOLYTICUM-AAES
     Dosage: UNK UNKNOWN, UNKNOWN (TREATMENT ONE ON THIGHS)
     Route: 065
     Dates: start: 20211222
  3. QWO [Suspect]
     Active Substance: COLLAGENASE CLOSTRIDIUM HISTOLYTICUM-AAES
     Dosage: UNK UNKNOWN, UNKNOWN (TREATMENT TWO ON BUTTOCKS)
     Route: 065
     Dates: start: 20220112
  4. QWO [Suspect]
     Active Substance: COLLAGENASE CLOSTRIDIUM HISTOLYTICUM-AAES
     Dosage: UNK UNKNOWN, UNKNOWN (TREATMENT TWO ON THIGHS)
     Route: 065
     Dates: start: 20220112
  5. QWO [Suspect]
     Active Substance: COLLAGENASE CLOSTRIDIUM HISTOLYTICUM-AAES
     Dosage: UNK UNKNOWN, UNKNOWN (TREATMENT THREE ON BUTTOCKS)
     Route: 065
     Dates: start: 20220204
  6. QWO [Suspect]
     Active Substance: COLLAGENASE CLOSTRIDIUM HISTOLYTICUM-AAES
     Dosage: UNK UNKNOWN, UNKNOWN (TREATMENT THREE ON THIGHS)
     Route: 065
     Dates: start: 20220204

REACTIONS (6)
  - Lipodystrophy acquired [Unknown]
  - Skin laxity [Unknown]
  - Cutaneous contour deformity [Unknown]
  - Drug ineffective [Unknown]
  - Product preparation issue [Unknown]
  - Off label use [Unknown]

NARRATIVE: CASE EVENT DATE: 20211222
